FAERS Safety Report 13486915 (Version 2)
Quarter: 2017Q3

REPORT INFORMATION
  Report Type: Spontaneous
  Country: JP (occurrence: JP)
  Receive Date: 20170426
  Receipt Date: 20170731
  Transmission Date: 20171127
  Serious: Yes (Death, Life-Threatening, Other)
  Sender: FDA-Public Use
  Company Number: JP-TEVA-762362ROM

PATIENT
  Age: 74 Year
  Sex: Male

DRUGS (4)
  1. CISPLATIN. [Concomitant]
     Active Substance: CISPLATIN
     Indication: CHEMOTHERAPY
     Dosage: 134 MILLIGRAM DAILY;
     Route: 041
     Dates: start: 20151225
  2. FEBUXOSTAT. [Concomitant]
     Active Substance: FEBUXOSTAT
     Indication: MIXED ADENONEUROENDOCRINE CARCINOMA
     Route: 065
  3. DENOSUMAB [Concomitant]
     Active Substance: DENOSUMAB
     Indication: MIXED ADENONEUROENDOCRINE CARCINOMA
     Route: 065
  4. ETOPOSIDE INTRAVENOUS INFUSION 100MG TAIYO [Suspect]
     Active Substance: ETOPOSIDE
     Indication: CHEMOTHERAPY
     Dosage: 168 MILLIGRAM DAILY;
     Route: 041
     Dates: start: 20151225, end: 20151227

REACTIONS (3)
  - Febrile neutropenia [Fatal]
  - Tumour lysis syndrome [Fatal]
  - Disseminated intravascular coagulation [Unknown]

NARRATIVE: CASE EVENT DATE: 20151227
